FAERS Safety Report 5068665-1 (Version None)
Quarter: 2006Q3

REPORT INFORMATION
  Report Type: 
  Country: None (occurrence: None)
  Receive Date: 20060802
  Receipt Date: 20060131
  Transmission Date: 20061208
  Serious: Yes (Other)
  Sender: FDA-Public Use
  Company Number: US-BRISTOL-MYERS SQUIBB COMPANY-13266796

PATIENT
  Age: 79 Year
  Sex: Male
  Weight: 72 kg

DRUGS (8)
  1. WARFARIN SODIUM [Suspect]
     Indication: THROMBOSIS
  2. WARFARIN SODIUM [Suspect]
     Indication: PULMONARY THROMBOSIS
  3. ACEON [Concomitant]
  4. TOPROL-XL [Concomitant]
  5. OMEPRAZOLE [Concomitant]
  6. LIPITOR [Concomitant]
  7. IBUPROFEN [Concomitant]
  8. DILANTIN [Concomitant]

REACTIONS (2)
  - CEREBRAL HAEMATOMA [None]
  - INTERNATIONAL NORMALISED RATIO DECREASED [None]
